FAERS Safety Report 23315049 (Version 1)
Quarter: 2023Q4

REPORT INFORMATION
  Report Type: Spontaneous
  Country: None (occurrence: IE)
  Receive Date: 20231219
  Receipt Date: 20231219
  Transmission Date: 20240109
  Serious: Yes (Hospitalization, Other)
  Sender: FDA-Public Use
  Company Number: IE-B.Braun Medical Inc.-2149549

PATIENT
  Sex: Male

DRUGS (4)
  1. STERILE WATER [Suspect]
     Active Substance: WATER
     Indication: Medication dilution
     Route: 042
  2. SODIUM CITRATE [Suspect]
     Active Substance: SODIUM CITRATE
  3. SODIUM CHLORIDE [Suspect]
     Active Substance: SODIUM CHLORIDE
  4. FLUCLOXACILLIN [Suspect]
     Active Substance: FLUCLOXACILLIN

REACTIONS (1)
  - Blood glucose increased [None]
